FAERS Safety Report 4931410-1 (Version None)
Quarter: 2006Q1

REPORT INFORMATION
  Report Type: 
  Country: None (occurrence: None)
  Receive Date: 20060228
  Receipt Date: 20060214
  Transmission Date: 20060701
  Serious: No
  Sender: FDA-Public Use
  Company Number: TRP-0710-2006

PATIENT
  Age: 64 Year
  Sex: Male

DRUGS (2)
  1. RIBASPHERE [Suspect]
     Indication: HEPATITIS C
     Dosage: 600 MG BID PO
     Route: 048
     Dates: start: 20060112, end: 20060213
  2. PEGASYS [Suspect]
     Indication: HEPATITIS C
     Dosage: 180 MCG QWK SC
     Route: 058
     Dates: start: 20060112

REACTIONS (4)
  - ABDOMINAL PAIN [None]
  - ANAEMIA [None]
  - DIARRHOEA HAEMORRHAGIC [None]
  - DYSPNOEA [None]
